FAERS Safety Report 14585936 (Version 1)
Quarter: 2018Q1

REPORT INFORMATION
  Report Type: Spontaneous
  Country: US (occurrence: US)
  Receive Date: 20180228
  Receipt Date: 20180228
  Transmission Date: 20180509
  Serious: Yes (Hospitalization)
  Sender: FDA-Public Use
  Company Number: None

PATIENT
  Age: 76 Year
  Sex: Male
  Weight: 95 kg

DRUGS (2)
  1. METOPROLOL. [Suspect]
     Active Substance: METOPROLOL
  2. ATENOLOL. [Suspect]
     Active Substance: ATENOLOL
     Indication: BRADYCARDIA
     Route: 048
     Dates: start: 20170104, end: 20171101

REACTIONS (1)
  - Bradycardia [None]

NARRATIVE: CASE EVENT DATE: 20171102
